FAERS Safety Report 5395928-2 (Version None)
Quarter: 2007Q3

REPORT INFORMATION
  Report Type: 
  Country: None (occurrence: None)
  Receive Date: 20070718
  Receipt Date: 20061011
  Transmission Date: 20080115
  Serious: Yes (Hospitalization, Other)
  Sender: FDA-Public Use
  Company Number: 2006127517

PATIENT
  Sex: Female
  Weight: 84.369 kg

DRUGS (2)
  1. CELEBREX [Suspect]
     Dosage: 100 MG (100 MG, 1 IN 1 D)
     Dates: start: 20020101
  2. BEXTRA [Suspect]
     Dosage: 20 MG (20 MG, 1 IN 1 D)
     Dates: start: 20030101

REACTIONS (3)
  - BLOOD CHOLESTEROL INCREASED [None]
  - HYPERTENSION [None]
  - MYOCARDIAL INFARCTION [None]
